FAERS Safety Report 9387666 (Version 1)
Quarter: 2013Q2

REPORT INFORMATION
  Report Type: Spontaneous
  Country: GB (occurrence: None)
  Receive Date: 20130625
  Receipt Date: 20130625
  Transmission Date: 20140414
  Serious: Yes (Other)
  Sender: FDA-Public Use
  Company Number: 2013036568

PATIENT
  Age: 23 Year
  Sex: Female

DRUGS (2)
  1. INTRAVENOUS IMMUNOGLOBULIN [Suspect]
     Indication: ANTI-PLATELET ANTIBODY
  2. CORTICOSTEROIDS (CORTICOSTERIODS) [Concomitant]

REACTIONS (8)
  - Pulmonary oedema [None]
  - Exposure during pregnancy [None]
  - Postpartum haemorrhage [None]
  - Hypertension [None]
  - Muscle twitching [None]
  - Clonus [None]
  - Hyperreflexia [None]
  - Metabolic acidosis [None]
